FAERS Safety Report 9638398 (Version 1)
Quarter: 2013Q4

REPORT INFORMATION
  Report Type: Spontaneous
  Country: US (occurrence: US)
  Receive Date: 20131022
  Receipt Date: 20131022
  Transmission Date: 20140711
  Serious: No
  Sender: FDA-Public Use
  Company Number: US-MYLANLABS-2013S1018602

PATIENT
  Age: 72 Year
  Sex: Male

DRUGS (2)
  1. CARBIDOPA AND LEVODOPA TABLETS USP [Suspect]
     Indication: PARKINSON^S DISEASE
     Dosage: TAKE FIVE TIMES DAILY.
     Route: 048
  2. CARBIDOPA AND LEVODOPA EXTENDED-RELEASE TABLETS [Suspect]
     Indication: PARKINSON^S DISEASE
     Route: 048
     Dates: start: 201307

REACTIONS (4)
  - Parkinsonism [Not Recovered/Not Resolved]
  - Muscle twitching [Not Recovered/Not Resolved]
  - Headache [Not Recovered/Not Resolved]
  - Musculoskeletal stiffness [Not Recovered/Not Resolved]
